FAERS Safety Report 9471811 (Version 1)
Quarter: 2013Q3

REPORT INFORMATION
  Report Type: Spontaneous
  Country: US (occurrence: None)
  Receive Date: 20130819
  Receipt Date: 20130819
  Transmission Date: 20140515
  Serious: Yes (Disabling, Other)
  Sender: FDA-Public Use
  Company Number: ACO_30950_2012

PATIENT
  Age: 35 Year
  Sex: Female
  Weight: 181.4 kg

DRUGS (6)
  1. AMPYRA [Suspect]
     Indication: MULTIPLE SCLEROSIS
     Route: 048
     Dates: start: 201203, end: 201206
  2. ALL OTHER THERAPEUTIC PRODUCTS (ALL OTHER THERAPEUTIC PRODUCTS ) [Concomitant]
  3. COLACE [Concomitant]
  4. SERTRALINE (SERTRALINE) [Concomitant]
  5. BACLOFEN (BACLOFEN) [Concomitant]
  6. MULTIVITAMINS WITH MINERALS /02319901/CALCIUM PANTOTHENATE, CHOLINE, CYANCOBALMIN, NICOTANIMIDE, PYRIDOXINE HYDROCHLORIDE, RIBOFLAVIN, THIAMINE HYDROCHLORIDE) [Concomitant]

REACTIONS (5)
  - Muscular weakness [None]
  - Dyskinesia [None]
  - Hypokinesia [None]
  - Therapeutic response unexpected [None]
  - Asthenia [None]
